FAERS Safety Report 10022432 (Version 2)
Quarter: 2014Q2

REPORT INFORMATION
  Report Type: Spontaneous
  Country: US (occurrence: US)
  Receive Date: 20140319
  Receipt Date: 20140516
  Transmission Date: 20141212
  Serious: Yes (Death, Hospitalization, Other)
  Sender: FDA-Public Use
  Company Number: US-009507513-1403USA008963

PATIENT
  Sex: Male
  Weight: 99.77 kg

DRUGS (10)
  1. JANUVIA [Suspect]
     Indication: TYPE 2 DIABETES MELLITUS
     Dosage: 100 MG, QD
     Route: 048
     Dates: start: 20110525, end: 20120702
  2. GLUCOTROL XL [Concomitant]
     Indication: TYPE 2 DIABETES MELLITUS
  3. ACTOS [Concomitant]
     Indication: TYPE 2 DIABETES MELLITUS
     Dosage: 45 MG, QD
     Route: 048
  4. GLUCOPHAGE [Concomitant]
     Indication: TYPE 2 DIABETES MELLITUS
  5. METFORMIN HYDROCHLORIDE [Concomitant]
     Indication: TYPE 2 DIABETES MELLITUS
  6. VICTOZA [Concomitant]
     Indication: TYPE 2 DIABETES MELLITUS
  7. PRANDIN (REPAGLINIDE) [Concomitant]
     Indication: TYPE 2 DIABETES MELLITUS
     Dosage: 2 MG TID A.C.
     Route: 048
  8. LEVEMIR [Concomitant]
     Indication: TYPE 2 DIABETES MELLITUS
     Dosage: 10 - 18 IU, QD
     Route: 058
  9. DILTIAZEM HYDROCHLORIDE [Concomitant]
     Indication: HYPERTENSION
     Dosage: 240 MG, QD
     Route: 048
  10. MONOPRIL [Concomitant]
     Indication: HYPERTENSION
     Dosage: 40 MG, QD
     Route: 048

REACTIONS (26)
  - Pancreatic carcinoma metastatic [Fatal]
  - Respiratory failure [Unknown]
  - Pleural effusion [Unknown]
  - Decreased appetite [Unknown]
  - Failure to thrive [Unknown]
  - Thrombocytopenia [Unknown]
  - Nephrolithiasis [Unknown]
  - Lithotripsy [Unknown]
  - Dyspnoea [Unknown]
  - Hypotension [Unknown]
  - Plantar fasciitis [Unknown]
  - Hypogonadism [Unknown]
  - Erectile dysfunction [Unknown]
  - Large intestine polyp [Unknown]
  - Diverticulum [Unknown]
  - Osteoarthritis [Unknown]
  - Irritable bowel syndrome [Unknown]
  - Hyperglycaemia [Unknown]
  - Gastritis [Unknown]
  - Catheter placement [Unknown]
  - Helicobacter infection [Unknown]
  - Musculoskeletal chest pain [Unknown]
  - Hypokalaemia [Unknown]
  - Ankle operation [Unknown]
  - Nasal septal operation [Unknown]
  - Constipation [Recovered/Resolved]
